FAERS Safety Report 18243188 (Version 1)
Quarter: 2020Q3

REPORT INFORMATION
  Report Type: Report from Study
  Country: US (occurrence: US)
  Receive Date: 20200908
  Receipt Date: 20200908
  Transmission Date: 20201103
  Serious: Yes (Other)
  Sender: FDA-Public Use
  Company Number: US-JNJFOC-20200901958

PATIENT
  Age: 15 Year
  Sex: Male

DRUGS (2)
  1. REMICADE [Suspect]
     Active Substance: INFLIXIMAB
     Indication: PSORIASIS
     Route: 042
     Dates: start: 201003, end: 201609
  2. METHOTREXATE. [Concomitant]
     Active Substance: METHOTREXATE

REACTIONS (5)
  - Fatigue [Unknown]
  - Post procedural infection [Unknown]
  - Dry skin [Unknown]
  - Mood altered [Unknown]
  - Upper respiratory tract infection [Unknown]
